FAERS Safety Report 9088048 (Version 2)
Quarter: 2013Q2

REPORT INFORMATION
  Report Type: Spontaneous
  Country: US (occurrence: US)
  Receive Date: 20130218
  Receipt Date: 20130419
  Transmission Date: 20140414
  Serious: Yes (Other)
  Sender: FDA-Public Use
  Company Number: CHPA2013US002953

PATIENT
  Age: 66 Year
  Sex: Female

DRUGS (3)
  1. EXCEDRIN EXTRA STRENGTH [Suspect]
     Indication: PAIN
     Dosage: UNK, UNK
     Route: 048
  2. BAYER ASPIRIN [Concomitant]
  3. VICODIN [Concomitant]
     Indication: PAIN

REACTIONS (8)
  - Convulsion [Recovered/Resolved]
  - Ulcer [Recovered/Resolved]
  - Gastric disorder [Recovered/Resolved]
  - Tooth loss [Recovered/Resolved]
  - Headache [Unknown]
  - Therapeutic response unexpected [Unknown]
  - Off label use [Unknown]
  - Overdose [Unknown]
